FAERS Safety Report 9390281 (Version 1)
Quarter: 2013Q3

REPORT INFORMATION
  Report Type: Spontaneous
  Country: FR (occurrence: FR)
  Receive Date: 20130709
  Receipt Date: 20130709
  Transmission Date: 20140515
  Serious: Yes (Other)
  Sender: FDA-Public Use
  Company Number: FR-ABBOTT-13X-056-1115185-00

PATIENT
  Age: 71 Year
  Sex: Female

DRUGS (1)
  1. LIPANTHYL [Suspect]
     Indication: DYSLIPIDAEMIA
     Route: 048
     Dates: start: 201303, end: 201305

REACTIONS (9)
  - Decreased appetite [Recovered/Resolved]
  - Weight decreased [Recovered/Resolved]
  - Hyperhidrosis [Recovered/Resolved]
  - Chills [Recovered/Resolved]
  - Malaise [Recovered/Resolved]
  - Hepatic enzyme increased [Recovered/Resolved]
  - Abdominal pain upper [Recovering/Resolving]
  - General physical health deterioration [Recovering/Resolving]
  - Asthenia [Recovering/Resolving]
